FAERS Safety Report 14352328 (Version 4)
Quarter: 2018Q4

REPORT INFORMATION
  Report Type: Spontaneous
  Country: US (occurrence: US)
  Receive Date: 20180104
  Receipt Date: 20181003
  Transmission Date: 20190204
  Serious: Yes (Hospitalization, Other)
  Sender: FDA-Public Use
  Company Number: US-PFIZER INC-2018000306

PATIENT
  Age: 36 Year
  Sex: Male

DRUGS (4)
  1. FENTANYL CITRATE. [Suspect]
     Active Substance: FENTANYL CITRATE
     Dosage: 0.5 G, UNK (0.5 G AT 10 A.M)
  2. FENTANYL CITRATE. [Suspect]
     Active Substance: FENTANYL CITRATE
     Dosage: 0.5 G, UNK (0.5 G AT APPROXIMATELY 1:30 P.M)
  3. HEROIN [Suspect]
     Active Substance: DIAMORPHINE
     Dosage: 0.5 G, UNK (AT 10 A.M., ANOTHER 0.5 G AT APPROXIMATELY 1:30 P.M)
     Route: 042
  4. HEROIN [Suspect]
     Active Substance: DIAMORPHINE
     Dosage: UNK, DAILY (1 TO 2 G)
     Route: 042

REACTIONS (6)
  - Overdose [Unknown]
  - Miosis [Recovered/Resolved]
  - Non-cardiogenic pulmonary oedema [Recovered/Resolved]
  - Depression [Recovered/Resolved]
  - Bradypnoea [Recovered/Resolved]
  - Hypoxia [Recovered/Resolved]
